FAERS Safety Report 6347274-8 (Version None)
Quarter: 2009Q3

REPORT INFORMATION
  Report Type: 
  Country: None (occurrence: None)
  Receive Date: 20090910
  Receipt Date: 20090908
  Transmission Date: 20100115
  Serious: Yes (Death, Hospitalization)
  Sender: FDA-Public Use
  Company Number: GB-BRISTOL-MYERS SQUIBB COMPANY-14769483

PATIENT
  Age: 17 Year
  Sex: Female

DRUGS (16)
  1. CYCLOPHOSPHAMIDE [Suspect]
     Indication: ACUTE LYMPHOCYTIC LEUKAEMIA
     Dates: start: 20090420, end: 20090424
  2. ETOPOSIDE [Suspect]
     Indication: ACUTE LYMPHOCYTIC LEUKAEMIA
     Dates: start: 20090420, end: 20090424
  3. EVOLTRA [Suspect]
     Indication: ACUTE LYMPHOCYTIC LEUKAEMIA
     Dates: start: 20090420, end: 20090424
  4. ACYCLOVIR [Concomitant]
  5. BISOPROLOL [Concomitant]
  6. CASPOFUNGIN ACETATE [Concomitant]
  7. CETIRIZINE HCL [Concomitant]
  8. CHLORPHENIRAMINE MALEATE [Concomitant]
  9. COTRIM [Concomitant]
  10. CYCLIZINE [Concomitant]
  11. LANSOPRAZOLE [Concomitant]
  12. LEVOMEPROMAZINE [Concomitant]
  13. ONDANSETRON [Concomitant]
  14. PARACETAMOL [Concomitant]
  15. PHENYTOIN [Concomitant]
  16. SALBUTAMOL [Concomitant]
     Route: 055

REACTIONS (5)
  - DYSPNOEA [None]
  - INFECTION [None]
  - NEUTROPENIA [None]
  - PYREXIA [None]
  - RESPIRATORY FAILURE [None]
